FAERS Safety Report 10798533 (Version 3)
Quarter: 2015Q2

REPORT INFORMATION
  Report Type: Report from Study
  Country: JP (occurrence: JP)
  Receive Date: 20150216
  Receipt Date: 20150501
  Transmission Date: 20150821
  Serious: Yes (Death, Hospitalization, Other)
  Sender: FDA-Public Use
  Company Number: JP-ALEXION PHARMACEUTICALS INC.-A201500519

PATIENT

DRUGS (8)
  1. HEPARIN SODIUM. [Concomitant]
     Active Substance: HEPARIN SODIUM
     Indication: THROMBOSIS PROPHYLAXIS
     Dosage: 10000 UT, QD
     Route: 042
     Dates: start: 20150116, end: 20150120
  2. GLYCEOL                            /00744501/ [Concomitant]
     Active Substance: GLYCERIN
     Indication: BRAIN OEDEMA
     Dosage: 200 ML, BID
     Route: 042
     Dates: start: 20150121, end: 20150122
  3. RADICUT [Concomitant]
     Active Substance: EDARAVONE
     Indication: PROPHYLAXIS
     Dosage: 100 ML, BID
     Route: 042
     Dates: start: 20150117, end: 20150126
  4. SOLIRIS [Suspect]
     Active Substance: ECULIZUMAB
     Indication: PAROXYSMAL NOCTURNAL HAEMOGLOBINURIA
     Dosage: 600 MG, QW
     Route: 042
     Dates: start: 20150122, end: 20150205
  5. HEPARIN SODIUM. [Concomitant]
     Active Substance: HEPARIN SODIUM
     Dosage: 20000 UT, QD
     Route: 042
     Dates: start: 20150121, end: 20150208
  6. HICALIQ [Concomitant]
     Active Substance: CALCIUM GLUCONATE\DEXTROSE\MAGNESIUM SULFATE\POTASSIUM ACETATE\POTASSIUM PHOSPHATE, DIBASIC\ZINC SULFATE
     Indication: PRODUCT USED FOR UNKNOWN INDICATION
     Dosage: 500 ML, DAILY
     Route: 065
     Dates: start: 20150131, end: 20150208
  7. PROTAMINE SULPHATE [Concomitant]
     Active Substance: PROTAMINE SULFATE
     Indication: PRODUCT USED FOR UNKNOWN INDICATION
     Dosage: 5 ML, DAILY
     Route: 065
     Dates: start: 20150122
  8. FOSPHENYTOIN SODIUM. [Concomitant]
     Active Substance: FOSPHENYTOIN SODIUM
     Indication: PRODUCT USED FOR UNKNOWN INDICATION
     Dosage: 5 ML, DAILY
     Route: 065
     Dates: start: 20150121, end: 20150126

REACTIONS (4)
  - Condition aggravated [Fatal]
  - Cerebral infarction [Fatal]
  - Cerebral haematoma [Fatal]
  - Respiratory rate decreased [Fatal]

NARRATIVE: CASE EVENT DATE: 20150208
